FAERS Safety Report 4315005-9 (Version None)
Quarter: 2004Q1

REPORT INFORMATION
  Report Type: 
  Country: None (occurrence: None)
  Receive Date: 20040309
  Receipt Date: 20040225
  Transmission Date: 20041129
  Serious: Yes (Hospitalization, Other)
  Sender: FDA-Public Use
  Company Number: NSADSS2003016278

PATIENT
  Age: 63 Year
  Sex: Male
  Weight: 76.2043 kg

DRUGS (11)
  1. REMICADE [Suspect]
     Indication: CROHN'S DISEASE
     Dosage: SEE IMAGE
     Route: 041
     Dates: start: 20001101, end: 20001101
  2. REMICADE [Suspect]
     Indication: PYODERMA GANGRENOSUM
     Dosage: SEE IMAGE
     Route: 041
     Dates: start: 20001101, end: 20001101
  3. REMICADE [Suspect]
     Indication: CROHN'S DISEASE
     Dosage: SEE IMAGE
     Route: 041
     Dates: start: 20010201
  4. REMICADE [Suspect]
     Indication: PYODERMA GANGRENOSUM
     Dosage: SEE IMAGE
     Route: 041
     Dates: start: 20010201
  5. ULTRAM [Concomitant]
  6. IBUPROFEN [Concomitant]
  7. PENTASA [Concomitant]
  8. AZULFADINE (SULFASALAZINE) [Concomitant]
  9. PREVACID [Concomitant]
  10. MULTIVITAMIN [Concomitant]
  11. PREDNISONE [Concomitant]

REACTIONS (30)
  - BONE INFECTION [None]
  - CAECITIS [None]
  - CARDIAC FAILURE CONGESTIVE [None]
  - CARDIOMEGALY [None]
  - CARPAL TUNNEL SYNDROME [None]
  - COLITIS [None]
  - HYPERTENSION [None]
  - HYPOAESTHESIA [None]
  - INJURY [None]
  - LETHARGY [None]
  - LOBAR PNEUMONIA [None]
  - LUPUS-LIKE SYNDROME [None]
  - METASTATIC RENAL CELL CARCINOMA [None]
  - NEPHROLITHIASIS [None]
  - OEDEMA PERIPHERAL [None]
  - PAIN [None]
  - PAIN IN EXTREMITY [None]
  - PARAESTHESIA [None]
  - PERICARDIAL EFFUSION [None]
  - PERICARDITIS [None]
  - PHARYNGOLARYNGEAL PAIN [None]
  - PLEURAL EFFUSION [None]
  - PYODERMA GANGRENOSUM [None]
  - RENAL CYST [None]
  - RENAL FAILURE [None]
  - RENAL MASS [None]
  - SINUS TACHYCARDIA [None]
  - STAPHYLOCOCCAL INFECTION [None]
  - VIRAL PHARYNGITIS [None]
  - WEIGHT INCREASED [None]
